FAERS Safety Report 11755764 (Version 1)
Quarter: 2015Q4

REPORT INFORMATION
  Report Type: Spontaneous
  Country: US (occurrence: US)
  Receive Date: 20151119
  Receipt Date: 20151119
  Transmission Date: 20160304
  Serious: No
  Sender: FDA-Public Use
  Company Number: US-AMARIN PHARMA, INC.-2015AMR000136

PATIENT
  Age: 55 Year
  Sex: Female

DRUGS (2)
  1. Z-PAC [Concomitant]
     Indication: SINUS DISORDER
     Route: 065
  2. VASCEPA [Suspect]
     Active Substance: ICOSAPENT ETHYL
     Indication: HYPERTRIGLYCERIDAEMIA
     Route: 048
     Dates: end: 20151006

REACTIONS (2)
  - Intentional product use issue [Unknown]
  - Haematochezia [Recovered/Resolved]

NARRATIVE: CASE EVENT DATE: 20151005
